FAERS Safety Report 8724934 (Version 2)
Quarter: 2015Q2

REPORT INFORMATION
  Report Type: Report from Study
  Country: US (occurrence: US)
  Receive Date: 20120815
  Receipt Date: 20150626
  Transmission Date: 20150821
  Serious: Yes (Hospitalization)
  Sender: FDA-Public Use
  Company Number: US-ROCHE-1100884

PATIENT
  Sex: Female

DRUGS (13)
  1. NITROGLYCERIN. [Concomitant]
     Active Substance: NITROGLYCERIN
     Dosage: 23MCG/MIN; 20MCG/MIN
     Route: 042
  2. RANITIDINE [Concomitant]
     Active Substance: RANITIDINE\RANITIDINE HYDROCHLORIDE
     Route: 042
  3. HUMAN INSULIN [Concomitant]
     Active Substance: INSULIN HUMAN
     Dosage: 30 UNITS IN AM AND 17 UNITS IN PM
     Route: 065
  4. ACTIVASE [Suspect]
     Active Substance: ALTEPLASE
     Indication: ACUTE MYOCARDIAL INFARCTION
     Dosage: 50 MG OVER 30 MINS AND REMAINING OVER 2 HOURS
     Route: 040
  5. ULTRALENTE [Concomitant]
     Dosage: 30 UNITS AM AND 16 UNITS PM
     Route: 065
  6. BENADRYL [Concomitant]
     Active Substance: DIPHENHYDRAMINE HYDROCHLORIDE
     Route: 042
  7. DEMEROL [Concomitant]
     Active Substance: MEPERIDINE HYDROCHLORIDE
     Route: 042
  8. ACTIVASE [Suspect]
     Active Substance: ALTEPLASE
     Route: 042
  9. HEPARIN [Concomitant]
     Active Substance: HEPARIN SODIUM
     Route: 042
  10. ASPIRIN. [Concomitant]
     Active Substance: ASPIRIN
  11. DEMEROL [Concomitant]
     Active Substance: MEPERIDINE HYDROCHLORIDE
     Route: 042
  12. HYDROCORTISONE. [Concomitant]
     Active Substance: HYDROCORTISONE
     Route: 042
  13. VALIUM [Concomitant]
     Active Substance: DIAZEPAM
     Route: 065

REACTIONS (3)
  - Chest discomfort [Recovered/Resolved]
  - Epigastric discomfort [Recovered/Resolved]
  - Nausea [Recovered/Resolved]
